FAERS Safety Report 4377436-0 (Version None)
Quarter: 2004Q2

REPORT INFORMATION
  Report Type: 
  Country: None (occurrence: None)
  Receive Date: 20040609
  Receipt Date: 20040322
  Transmission Date: 20050107
  Serious: No
  Sender: FDA-Public Use
  Company Number: 2004196657US

PATIENT
  Age: 63 Year
  Sex: Female

DRUGS (4)
  1. BEXTRA [Suspect]
     Indication: ARTHRITIS
     Dates: start: 20030801, end: 20031128
  2. ALLEGRA [Concomitant]
  3. PREVACID [Concomitant]
  4. LIPITOR [Concomitant]

REACTIONS (1)
  - BLOOD URINE PRESENT [None]
